FAERS Safety Report 6029864-5 (Version None)
Quarter: 2008Q4

REPORT INFORMATION
  Report Type: 
  Country: None (occurrence: None)
  Receive Date: 20081222
  Receipt Date: 20081003
  Transmission Date: 20090506
  Serious: No
  Sender: FDA-Public Use
  Company Number: US-WYE-H06251308

PATIENT
  Age: 61 Year
  Sex: Female
  Weight: 122.13 kg

DRUGS (10)
  1. PRISTIQ [Suspect]
     Indication: ANXIETY
     Dosage: 50 MG 1X PER 1 DAY, ORAL
     Route: 048
     Dates: start: 20080829
  2. PRISTIQ [Suspect]
     Indication: DEPRESSION
     Dosage: 50 MG 1X PER 1 DAY, ORAL
     Route: 048
     Dates: start: 20080829
  3. PRISTIQ [Suspect]
     Indication: ANXIETY
     Dosage: 50 MG 1X PER 1 DAY, ORAL
     Route: 048
     Dates: start: 20080901
  4. PRISTIQ [Suspect]
     Indication: DEPRESSION
     Dosage: 50 MG 1X PER 1 DAY, ORAL
     Route: 048
     Dates: start: 20080901
  5. PRISTIQ [Suspect]
     Dosage: 100 MG 1X PER 1 DAY, ORAL
     Route: 048
     Dates: start: 20080901
  6. ZOLOFT [Concomitant]
  7. CLONAZEPAM [Concomitant]
  8. LANOXIN [Concomitant]
  9. NORPACE [Concomitant]
  10. VISTARIL [Concomitant]

REACTIONS (9)
  - ANXIETY [None]
  - CONDITION AGGRAVATED [None]
  - CRYING [None]
  - DEPRESSION [None]
  - DRUG INEFFECTIVE [None]
  - IRRITABILITY [None]
  - RESTLESSNESS [None]
  - THINKING ABNORMAL [None]
  - VIOLENCE-RELATED SYMPTOM [None]
